FAERS Safety Report 4550395-3 (Version None)
Quarter: 2004Q4

REPORT INFORMATION
  Report Type: 
  Country: None (occurrence: None)
  Receive Date: 20041227
  Receipt Date: 20041014
  Transmission Date: 20050328
  Serious: No
  Sender: FDA-Public Use
  Company Number: 04P-164-0277433-00

PATIENT
  Age: 80 Year
  Sex: Male
  Weight: 83.0083 kg

DRUGS (6)
  1. HUMIRA [Suspect]
     Indication: RHEUMATOID ARTHRITIS
     Dosage: 40 MG, 1 IN 2 WK, SUBCUTANEOUS
     Route: 058
     Dates: start: 20040903
  2. METOPROLOL [Concomitant]
  3. SULINDAE [Concomitant]
  4. METHOTREXATE [Concomitant]
  5. CALCIUM GLUCONATE [Concomitant]
  6. CLONAZEPAM [Concomitant]

REACTIONS (1)
  - INJECTION SITE BURNING [None]
